FAERS Safety Report 24749284 (Version 4)
Quarter: 2025Q1

REPORT INFORMATION
  Report Type: Report from Study
  Country: FI (occurrence: FI)
  Receive Date: 20241218
  Receipt Date: 20250121
  Transmission Date: 20250409
  Serious: Yes (Hospitalization, Other)
  Sender: MYLAN
  Company Number: FI-MYLANLABS-2024M1113170

PATIENT
  Age: 45 Year
  Sex: Male
  Weight: 94 kg

DRUGS (13)
  1. CLOZAPINE [Suspect]
     Active Substance: CLOZAPINE
     Indication: Schizophrenia
     Dosage: 100 MILLIGRAM, QD
     Route: 048
     Dates: start: 20241107, end: 20241119
  2. CLOZAPINE [Suspect]
     Active Substance: CLOZAPINE
     Dosage: UNK, BID
     Route: 048
     Dates: start: 20241202, end: 20241205
  3. CLOZAPINE [Suspect]
     Active Substance: CLOZAPINE
     Dosage: 100 MILLIGRAM, BID
     Route: 048
     Dates: start: 20241210, end: 20241211
  4. CLOZAPINE [Suspect]
     Active Substance: CLOZAPINE
     Indication: Schizophrenia
     Dosage: 25 MILLIGRAM, QD
     Route: 048
     Dates: start: 20241129, end: 20241129
  5. CLOZAPINE [Suspect]
     Active Substance: CLOZAPINE
     Dosage: 25 MILLIGRAM, BID
     Route: 048
     Dates: start: 20241130, end: 20241201
  6. ARIPIPRAZOLE [Concomitant]
     Active Substance: ARIPIPRAZOLE
     Dosage: 15 MILLIGRAM, QD
     Route: 048
  7. LEVOMEPROMAZINE [Concomitant]
     Active Substance: LEVOMEPROMAZINE
     Dosage: 25 MILLIGRAM, QD
     Route: 048
  8. MELATONIN [Concomitant]
     Active Substance: MELATONIN
     Dosage: 3 MILLIGRAM, QD
     Route: 048
  9. BISOPROLOL [Concomitant]
     Active Substance: BISOPROLOL
     Route: 048
  10. FLUTICASONE FUROATE [Concomitant]
     Active Substance: FLUTICASONE FUROATE
     Route: 045
  11. IBUPROFEN [Concomitant]
     Active Substance: IBUPROFEN
     Route: 048
  12. QUETIAPINE [Concomitant]
     Active Substance: QUETIAPINE
     Route: 048
  13. ACETAMINOPHEN [Concomitant]
     Active Substance: ACETAMINOPHEN
     Route: 048

REACTIONS (52)
  - COVID-19 [Recovered/Resolved]
  - Gastrointestinal oedema [Unknown]
  - Gastroenteritis clostridial [Recovered/Resolved]
  - Tricuspid valve incompetence [Unknown]
  - Hypoventilation [Unknown]
  - Myopericarditis [Recovered/Resolved]
  - Pneumonia [Recovered/Resolved]
  - Pyrexia [Recovered/Resolved]
  - Pulmonary embolism [Recovered/Resolved with Sequelae]
  - Myocarditis [Unknown]
  - Mitral valve incompetence [Unknown]
  - Eosinophilia [Recovered/Resolved]
  - Troponin I increased [Recovered/Resolved]
  - Cardiac disorder [Recovered/Resolved]
  - Rhinitis [Recovered/Resolved]
  - Dehydration [Recovered/Resolved]
  - C-reactive protein increased [Recovering/Resolving]
  - Blood creatinine increased [Recovered/Resolved]
  - Glomerular filtration rate decreased [Recovered/Resolved]
  - Blood sodium increased [Recovered/Resolved]
  - Brain natriuretic peptide increased [Unknown]
  - Blood thromboplastin increased [Unknown]
  - Activated partial thromboplastin time shortened [Unknown]
  - Diastolic dysfunction [Unknown]
  - Abdominal lymphadenopathy [Unknown]
  - Swelling [Unknown]
  - Haemoglobin increased [Recovered/Resolved]
  - Haematocrit increased [Recovered/Resolved]
  - Red cell distribution width increased [Not Recovered/Not Resolved]
  - Conjunctival hyperaemia [Unknown]
  - Oral mucosal erythema [Unknown]
  - Respiratory rate increased [Unknown]
  - Lung opacity [Unknown]
  - Atelectasis [Unknown]
  - Sinus congestion [Recovered/Resolved]
  - Coagulation factor VIII level increased [Unknown]
  - Hypotension [Recovered/Resolved]
  - Pleural effusion [Unknown]
  - Alanine aminotransferase increased [Recovered/Resolved]
  - Sinus tachycardia [Unknown]
  - Fatigue [Unknown]
  - White blood cell count increased [Recovered/Resolved]
  - Dizziness [Recovered/Resolved]
  - Neutrophil count increased [Recovered/Resolved]
  - Haemoglobin decreased [Recovered/Resolved]
  - Diarrhoea [Recovered/Resolved]
  - Haematocrit decreased [Recovered/Resolved]
  - Nausea [Recovered/Resolved]
  - Platelet count decreased [Recovered/Resolved]
  - Platelet count increased [Recovered/Resolved]
  - Dyspnoea [Recovered/Resolved]
  - Off label use [Unknown]

NARRATIVE: CASE EVENT DATE: 20241101
